FAERS Safety Report 6180057-0 (Version None)
Quarter: 2009Q2

REPORT INFORMATION
  Report Type: 
  Country: None (occurrence: None)
  Receive Date: 20090505
  Receipt Date: 20090423
  Transmission Date: 20091009
  Serious: Yes (Hospitalization)
  Sender: FDA-Public Use
  Company Number: JP-AMGEN-US251748

PATIENT
  Sex: Female

DRUGS (2)
  1. ENBREL [Suspect]
     Indication: DRUG USE FOR UNKNOWN INDICATION
     Route: 058
     Dates: start: 20050922
  2. SALAZOSULFAPYRIDINE [Concomitant]
     Dosage: TABLET; DOSE AND FREQUENCY NOT SPECIFIED
     Route: 048

REACTIONS (1)
  - PNEUMONIA BACTERIAL [None]
